FAERS Safety Report 7575257-9 (Version None)
Quarter: 2011Q2

REPORT INFORMATION
  Report Type: 
  Country: None (occurrence: None)
  Receive Date: 20110627
  Receipt Date: 20110614
  Transmission Date: 20111010
  Serious: Yes (Hospitalization)
  Sender: FDA-Public Use
  Company Number: FR-ELI_LILLY_AND_COMPANY-FR201106007434

PATIENT
  Age: 55 Year
  Sex: Female

DRUGS (2)
  1. RALOXIFENE HYDROCHLORIDE [Suspect]
     Dosage: UNK
     Route: 048
     Dates: start: 20110201, end: 20110601
  2. CACIT VITAMINE D3 [Concomitant]

REACTIONS (1)
  - THROMBOCYTOPENIA [None]
